FAERS Safety Report 20127273 (Version 3)
Quarter: 2022Q1

REPORT INFORMATION
  Report Type: Spontaneous
  Country: JP (occurrence: JP)
  Receive Date: 20211129
  Receipt Date: 20220119
  Transmission Date: 20220423
  Serious: Yes (Other)
  Sender: FDA-Public Use
  Company Number: JP-SYMBIO-202100460

PATIENT
  Age: 73 Year
  Sex: Male

DRUGS (16)
  1. BENDAMUSTINE HYDROCHLORIDE [Suspect]
     Active Substance: BENDAMUSTINE HYDROCHLORIDE
     Indication: Follicular lymphoma
     Route: 041
     Dates: start: 20210805, end: 20210806
  2. BENDAMUSTINE HYDROCHLORIDE [Suspect]
     Active Substance: BENDAMUSTINE HYDROCHLORIDE
     Indication: Diffuse large B-cell lymphoma
     Dosage: (CYCLIC)
     Route: 041
     Dates: start: 202108
  3. BENDAMUSTINE HYDROCHLORIDE [Suspect]
     Active Substance: BENDAMUSTINE HYDROCHLORIDE
     Dosage: (CYCLIC)
     Route: 041
     Dates: start: 202109
  4. BENDAMUSTINE HYDROCHLORIDE [Suspect]
     Active Substance: BENDAMUSTINE HYDROCHLORIDE
     Dosage: (CYCLIC)
     Route: 041
     Dates: start: 202110
  5. BENDAMUSTINE HYDROCHLORIDE [Suspect]
     Active Substance: BENDAMUSTINE HYDROCHLORIDE
     Route: 041
     Dates: start: 20211117, end: 20211118
  6. GAZYVA [Suspect]
     Active Substance: OBINUTUZUMAB
     Indication: Follicular lymphoma
     Dosage: CYCLIC
     Route: 041
  7. RITUXAN [Suspect]
     Active Substance: RITUXIMAB
     Indication: Diffuse large B-cell lymphoma
     Dosage: CYCLIC
     Route: 041
     Dates: start: 20210805, end: 20210805
  8. RITUXAN [Suspect]
     Active Substance: RITUXIMAB
     Dosage: CYCLIC
     Route: 041
     Dates: start: 202108
  9. RITUXAN [Suspect]
     Active Substance: RITUXIMAB
     Dosage: CYCLIC
     Route: 041
     Dates: start: 202109
  10. RITUXAN [Suspect]
     Active Substance: RITUXIMAB
     Dosage: CYCLIC
     Route: 041
     Dates: start: 202110
  11. RITUXAN [Suspect]
     Active Substance: RITUXIMAB
     Dosage: CYCLIC
     Route: 041
     Dates: start: 20211116, end: 20211116
  12. POLIVY [Suspect]
     Active Substance: POLATUZUMAB VEDOTIN-PIIQ
     Indication: Diffuse large B-cell lymphoma
     Dosage: CYCLIC
     Route: 041
     Dates: start: 20210806, end: 20210806
  13. POLIVY [Suspect]
     Active Substance: POLATUZUMAB VEDOTIN-PIIQ
     Dosage: CYCLIC
     Route: 041
     Dates: start: 202108
  14. POLIVY [Suspect]
     Active Substance: POLATUZUMAB VEDOTIN-PIIQ
     Dosage: CYCLIC
     Route: 041
     Dates: start: 202109
  15. POLIVY [Suspect]
     Active Substance: POLATUZUMAB VEDOTIN-PIIQ
     Dosage: CYCLIC
     Route: 041
     Dates: start: 202110
  16. POLIVY [Suspect]
     Active Substance: POLATUZUMAB VEDOTIN-PIIQ
     Dosage: CYCLIC
     Route: 041
     Dates: start: 20211117, end: 20211117

REACTIONS (7)
  - Febrile neutropenia [Unknown]
  - Neutropenia [Unknown]
  - Thrombocytopenia [Unknown]
  - Neuropathy peripheral [Unknown]
  - Anaemia [Unknown]
  - Nausea [Unknown]
  - Off label use [Unknown]

NARRATIVE: CASE EVENT DATE: 20210805
